FAERS Safety Report 24873426 (Version 1)
Quarter: 2025Q1

REPORT INFORMATION
  Report Type: Report from Study
  Country: US (occurrence: US)
  Receive Date: 20250122
  Receipt Date: 20250122
  Transmission Date: 20250409
  Serious: Yes (Hospitalization, Other)
  Sender: GILEAD
  Company Number: US-GILEAD-2025-0700099

PATIENT
  Age: 36 Year
  Sex: Male

DRUGS (12)
  1. AZTREONAM LYSINE [Suspect]
     Active Substance: AZTREONAM LYSINE
     Indication: Pseudomonas infection
     Dosage: 75 MG THREE TIMES DAILY FOR 28 DAYS, OFF 28 DAYS
     Route: 055
     Dates: start: 202410
  2. PULMOZYME [Concomitant]
     Active Substance: DORNASE ALFA
  3. BUSPIRONE HCL [Concomitant]
     Active Substance: BUSPIRONE HYDROCHLORIDE
  4. TOBRAMYCIN [Concomitant]
     Active Substance: TOBRAMYCIN
  5. FLONASE ALLERGY RELIEF [Concomitant]
     Active Substance: FLUTICASONE PROPIONATE
  6. TRIKAFTA [Concomitant]
     Active Substance: ELEXACAFTOR\IVACAFTOR\TEZACAFTOR
  7. MIRTAZAPINE [Concomitant]
     Active Substance: MIRTAZAPINE
  8. LORAZEPAM [Concomitant]
     Active Substance: LORAZEPAM
  9. ALPRAZOLAM [Concomitant]
     Active Substance: ALPRAZOLAM
  10. ONDANSETRON ODT [ONDANSETRON] [Concomitant]
  11. ALBUTEROL SULFATE [Concomitant]
     Active Substance: ALBUTEROL SULFATE
  12. OMEPRAZOLE [Concomitant]
     Active Substance: OMEPRAZOLE

REACTIONS (1)
  - Cystic fibrosis [Unknown]

NARRATIVE: CASE EVENT DATE: 20241201
